FAERS Safety Report 25066669 (Version 4)
Quarter: 2025Q3

REPORT INFORMATION
  Report Type: Spontaneous
  Country: US (occurrence: US)
  Receive Date: 20250312
  Receipt Date: 20250905
  Transmission Date: 20251020
  Serious: Yes (Disabling, Other)
  Sender: CHATTEM
  Company Number: US-OPELLA-2025OHG006570

PATIENT
  Age: 41 Year
  Sex: Female

DRUGS (8)
  1. GOLD BOND ORIGINAL STRENGTH [Suspect]
     Active Substance: MENTHOL
     Indication: Product used for unknown indication
     Route: 065
  2. PREDNISONE [Concomitant]
     Active Substance: PREDNISONE
     Indication: Product used for unknown indication
     Route: 048
     Dates: start: 20180620
  3. imitrex 100 mg tablet [Concomitant]
     Indication: Product used for unknown indication
     Route: 048
     Dates: start: 20180423
  4. ZYRTEC [Concomitant]
     Active Substance: CETIRIZINE HYDROCHLORIDE
     Indication: Product used for unknown indication
     Dosage: 1 CAPSULE BY MOUTH DAILY
     Route: 048
     Dates: start: 20180423
  5. Epipen 2-Pak 0.3 mg/0.3 ml injection, auto injector [Concomitant]
     Indication: Product used for unknown indication
     Route: 030
     Dates: start: 20180423
  6. ZITHROMAX [Concomitant]
     Active Substance: AZITHROMYCIN DIHYDRATE
     Indication: Product used for unknown indication
     Route: 065
     Dates: start: 20191018
  7. CIPRO [Concomitant]
     Active Substance: CIPROFLOXACIN HYDROCHLORIDE
     Indication: Product used for unknown indication
     Dosage: 1 TABLET BY MOUTH DAILY AS NEEDED
     Route: 065
     Dates: start: 20181023
  8. TESSALON [Concomitant]
     Active Substance: BENZONATATE
     Indication: Product used for unknown indication
     Dosage: 1 TID FOR 21 DAYS
     Route: 065
     Dates: start: 20191018

REACTIONS (2)
  - Mesothelioma [Unknown]
  - Exposure to chemical pollution [Unknown]

NARRATIVE: CASE EVENT DATE: 20210614
